FAERS Safety Report 13139617 (Version 1)
Quarter: 2017Q1

REPORT INFORMATION
  Report Type: Spontaneous
  Country: US (occurrence: US)
  Receive Date: 20170123
  Receipt Date: 20170123
  Transmission Date: 20170428
  Serious: No
  Sender: FDA-Public Use
  Company Number: US-REGENERON PHARMACEUTICALS, INC.-2016-20683

PATIENT

DRUGS (3)
  1. EYLEA [Suspect]
     Active Substance: AFLIBERCEPT
     Indication: NEOVASCULAR AGE-RELATED MACULAR DEGENERATION
     Dosage: 0.05 ML MILLILITRE(S), OD, EVERY 6 WEEKS OR SO
     Route: 031
     Dates: start: 20131213
  2. EYLEA [Suspect]
     Active Substance: AFLIBERCEPT
     Dosage: 0.05 ML MILLILITRE(S), OD, EVERY 6 WEEKS OR SO
     Route: 031
     Dates: start: 20160916, end: 20160916
  3. EYLEA [Suspect]
     Active Substance: AFLIBERCEPT
     Dosage: 0.05 ML MILLILITRE(S), OD, EVERY 6 WEEKS OR SO
     Route: 031
     Dates: start: 20160610, end: 20160610

REACTIONS (2)
  - Urinary tract infection [Recovered/Resolved]
  - Drug dose omission [Recovered/Resolved]

NARRATIVE: CASE EVENT DATE: 20160812
